FAERS Safety Report 10911480 (Version 1)
Quarter: 2015Q1

REPORT INFORMATION
  Report Type: Spontaneous
  Country: US (occurrence: US)
  Receive Date: 20150313
  Receipt Date: 20150313
  Transmission Date: 20150721
  Serious: Yes (Other)
  Sender: FDA-Public Use
  Company Number: US-BAUSCH-BL-2015-004243

PATIENT
  Age: 48 Year
  Sex: Male

DRUGS (1)
  1. XENAZINE [Suspect]
     Active Substance: TETRABENAZINE
     Indication: DYSKINESIA
     Route: 048
     Dates: start: 20130128

REACTIONS (2)
  - Intentional product use issue [Not Recovered/Not Resolved]
  - Parkinsonism [Unknown]

NARRATIVE: CASE EVENT DATE: 20130128
